FAERS Safety Report 14479417 (Version 1)
Quarter: 2018Q1

REPORT INFORMATION
  Report Type: Spontaneous
  Country: US (occurrence: US)
  Receive Date: 20180201
  Receipt Date: 20180201
  Transmission Date: 20180509
  Serious: No
  Sender: FDA-Public Use
  Company Number: None

PATIENT
  Age: 64 Year
  Sex: Female

DRUGS (15)
  1. LETAIRIS [Suspect]
     Active Substance: AMBRISENTAN
     Indication: BRONCHIOLITIS
     Route: 048
     Dates: start: 201708, end: 20180101
  2. MVI [Concomitant]
     Active Substance: VITAMINS
  3. LETAIRIS [Suspect]
     Active Substance: AMBRISENTAN
     Indication: INTERSTITIAL LUNG DISEASE
     Route: 048
     Dates: start: 201708, end: 20180101
  4. AMLODIPINE [Concomitant]
     Active Substance: AMLODIPINE BESYLATE
  5. ALBUTEROL INHL NEB SOLN [Concomitant]
  6. ADVAIR DISKUS [Concomitant]
     Active Substance: FLUTICASONE PROPIONATE\SALMETEROL XINAFOATE
  7. PREDNISONE. [Concomitant]
     Active Substance: PREDNISONE
  8. KLOR-CON [Concomitant]
     Active Substance: POTASSIUM CHLORIDE
  9. POLY-IRON FORTE [Concomitant]
  10. AZATHIOPRINE. [Concomitant]
     Active Substance: AZATHIOPRINE
  11. CALCIUM-CARBONATRE-VITAMIN D3 [Concomitant]
  12. RANITIDINE. [Concomitant]
     Active Substance: RANITIDINE
  13. FUROSEMIDE. [Concomitant]
     Active Substance: FUROSEMIDE
  14. MUCINEX [Concomitant]
     Active Substance: GUAIFENESIN
  15. OMEPRAZOLE. [Concomitant]
     Active Substance: OMEPRAZOLE

REACTIONS (1)
  - Dyspnoea exertional [None]

NARRATIVE: CASE EVENT DATE: 20180105
